FAERS Safety Report 15061699 (Version 1)
Quarter: 2018Q2

REPORT INFORMATION
  Report Type: Spontaneous
  Country: US (occurrence: US)
  Receive Date: 20180625
  Receipt Date: 20180625
  Transmission Date: 20180711
  Serious: Yes (Hospitalization)
  Sender: FDA-Public Use
  Company Number: US-ROCHE-2139669

PATIENT

DRUGS (16)
  1. HERCEPTIN [Suspect]
     Active Substance: TRASTUZUMAB
     Dosage: ONGOING: NO
     Route: 065
     Dates: start: 201708, end: 201709
  2. NEULASTA [Concomitant]
     Active Substance: PEGFILGRASTIM
     Dosage: ONGOING: UNKNOWN
     Route: 065
  3. PERJETA [Suspect]
     Active Substance: PERTUZUMAB
     Dosage: ONGOING: NO
     Route: 065
     Dates: start: 201708, end: 201709
  4. NAVELBINE [Suspect]
     Active Substance: VINORELBINE TARTRATE
     Indication: DIABETES MELLITUS
     Dosage: ONGOING: NO
     Route: 065
     Dates: start: 201708, end: 201709
  5. XELODA [Suspect]
     Active Substance: CAPECITABINE
     Indication: BREAST CANCER
     Dosage: ONGOING: NO
     Route: 065
     Dates: start: 20161006
  6. LIQUID BANDAGE [Concomitant]
     Active Substance: BENZETHONIUM CHLORIDE
     Dosage: ONGOING: YES
     Route: 065
  7. INSULIN [Concomitant]
     Active Substance: INSULIN NOS
     Indication: DIABETES MELLITUS
     Dosage: ONGOING: NO
     Route: 065
     Dates: start: 201710
  8. HERCEPTIN [Suspect]
     Active Substance: TRASTUZUMAB
     Indication: BREAST CANCER
     Dosage: ONGOING: UNKNOWN
     Route: 065
     Dates: start: 2015
  9. XGEVA [Concomitant]
     Active Substance: DENOSUMAB
     Dosage: ONGOING: UNKNOWN
     Route: 065
     Dates: start: 20180525
  10. CARBOPLATIN. [Concomitant]
     Active Substance: CARBOPLATIN
     Dosage: ONGOING
     Route: 065
     Dates: start: 2015
  11. KADCYLA [Suspect]
     Active Substance: ADO-TRASTUZUMAB EMTANSINE
     Indication: BREAST CANCER
     Route: 065
     Dates: start: 20180525
  12. HERCEPTIN [Suspect]
     Active Substance: TRASTUZUMAB
     Dosage: LOW DOSE ;ONGOING: UNKNOWN
     Route: 065
     Dates: start: 20180525
  13. TAXOTERE [Concomitant]
     Active Substance: DOCETAXEL
     Indication: BREAST CANCER
     Dosage: ONGOING: NO
     Route: 065
     Dates: start: 2015
  14. PERJETA [Suspect]
     Active Substance: PERTUZUMAB
     Indication: BREAST CANCER
     Dosage: ONGOING: UNKNOWN
     Route: 065
     Dates: start: 2015
  15. BENADRYL [Suspect]
     Active Substance: DIPHENHYDRAMINE HYDROCHLORIDE
     Indication: PRURITUS
     Dosage: ONGOING: NO
     Route: 061
  16. FASLODEX [Concomitant]
     Active Substance: FULVESTRANT
     Dosage: ONGOING: UNKNOWN
     Route: 065
     Dates: start: 20180525

REACTIONS (11)
  - Rash [Not Recovered/Not Resolved]
  - Purpura [Not Recovered/Not Resolved]
  - Scab [Not Recovered/Not Resolved]
  - Scratch [Not Recovered/Not Resolved]
  - Recurrent cancer [Unknown]
  - Palpitations [Recovered/Resolved]
  - White blood cell disorder [Unknown]
  - Burning sensation [Unknown]
  - Diabetes mellitus [Recovered/Resolved]
  - Muscle spasms [Recovered/Resolved]
  - Pruritus [Not Recovered/Not Resolved]

NARRATIVE: CASE EVENT DATE: 201710
